FAERS Safety Report 7989858-7 (Version None)
Quarter: 2011Q4

REPORT INFORMATION
  Report Type: 
  Country: None (occurrence: None)
  Receive Date: 20111219
  Receipt Date: 20101101
  Transmission Date: 20120403
  Serious: No
  Sender: FDA-Public Use
  Company Number: US-ASTRAZENECA-2010SE52245

PATIENT
  Age: 57 Year
  Sex: Female

DRUGS (12)
  1. CRESTOR [Suspect]
     Route: 048
  2. AMBIEN [Concomitant]
  3. TRICOR [Concomitant]
  4. CLARINEX [Concomitant]
  5. BENICAR [Concomitant]
  6. BUSPAR [Concomitant]
  7. SINGULAIR [Concomitant]
  8. CONCERTA [Concomitant]
  9. NASACORT AQ [Concomitant]
  10. ASPIRIN [Concomitant]
  11. NORVASC [Concomitant]
  12. VITAMIN TAB [Concomitant]

REACTIONS (4)
  - FATIGUE [None]
  - COUGH [None]
  - PAIN IN EXTREMITY [None]
  - THROAT IRRITATION [None]
